FAERS Safety Report 5151188-9 (Version None)
Quarter: 2006Q4

REPORT INFORMATION
  Report Type: 
  Country: None (occurrence: None)
  Receive Date: 20061114
  Receipt Date: 20061114
  Transmission Date: 20070319
  Serious: Yes (Other)
  Sender: FDA-Public Use
  Company Number: None

PATIENT
  Age: 48 Year
  Sex: Female
  Weight: 68.0396 kg

DRUGS (3)
  1. EFFEXOR [Suspect]
     Indication: AMNESIA
     Dosage: 37.5       2       PO
     Route: 048
     Dates: start: 20040301, end: 20061101
  2. EFFEXOR [Suspect]
     Indication: ANXIETY
     Dosage: 37.5       2       PO
     Route: 048
     Dates: start: 20040301, end: 20061101
  3. EFFEXOR [Suspect]
     Indication: DEPRESSION
     Dosage: 37.5       2       PO
     Route: 048
     Dates: start: 20040301, end: 20061101

REACTIONS (2)
  - DRUG WITHDRAWAL SYNDROME [None]
  - WEIGHT INCREASED [None]
